FAERS Safety Report 5885325-5 (Version None)
Quarter: 2008Q3

REPORT INFORMATION
  Report Type: 
  Country: None (occurrence: None)
  Receive Date: 20080915
  Receipt Date: 20080915
  Transmission Date: 20090109
  Serious: Yes (Life-Threatening, Hospitalization, Disabling)
  Sender: FDA-Public Use
  Company Number: None

PATIENT
  Age: 51 Year
  Sex: Male
  Weight: 107 kg

DRUGS (15)
  1. IOPAMIDOL [Suspect]
     Indication: SCAN WITH CONTRAST
     Dosage: 70 ML ONCE IV BOLUS
     Route: 040
     Dates: start: 20080820, end: 20080820
  2. ZOVIRAX [Concomitant]
  3. PROTONIX [Concomitant]
  4. ASPIRIN [Concomitant]
  5. LOVENOX [Concomitant]
  6. QUETIAPINE [Concomitant]
  7. IMDUR [Concomitant]
  8. CYPROHEPTADINE HCL [Concomitant]
  9. DIVALPROEX SODIUM [Concomitant]
  10. GEMFIBROZIL [Concomitant]
  11. ESCITALOPRAM [Concomitant]
  12. LISINOPRIL [Concomitant]
  13. METOPROLOL TARTRATE [Concomitant]
  14. NITROGLYCERIN [Concomitant]
  15. SIMVASTATIN [Concomitant]

REACTIONS (2)
  - ANAPHYLACTIC REACTION [None]
  - DOCUMENTED HYPERSENSITIVITY TO ADMINISTERED DRUG [None]
